FAERS Safety Report 4815953-7 (Version None)
Quarter: 2005Q4

REPORT INFORMATION
  Report Type: 
  Country: None (occurrence: None)
  Receive Date: 20051027
  Receipt Date: 20051019
  Transmission Date: 20060501
  Serious: Yes (Hospitalization)
  Sender: FDA-Public Use
  Company Number: S05-FRA-03931-01

PATIENT
  Age: 83 Year
  Sex: Female

DRUGS (9)
  1. MEMANTINE HCL [Suspect]
     Dosage: 20 MG QD PO
     Route: 048
  2. MEMANTINE HCL [Suspect]
     Dosage: 15 MG QD PO
     Route: 048
  3. MEMANTINE HCL [Suspect]
     Dosage: 10 MG QD PO
     Route: 048
  4. MEMANTINE HCL [Suspect]
     Dosage: 5 MG QD PO
     Route: 048
  5. ARICEPT [Concomitant]
  6. KARDEGIC (ACETYLSALICYLATE LYSINE) [Concomitant]
  7. KERLONE [Concomitant]
  8. FUROSEMIDE [Concomitant]
  9. NITRIDERM TTS (GLYCERYL TRINITRATE) [Concomitant]

REACTIONS (1)
  - ACUTE PULMONARY OEDEMA [None]
